FAERS Safety Report 24316698 (Version 2)
Quarter: 2024Q3

REPORT INFORMATION
  Report Type: Spontaneous
  Country: CZ (occurrence: CZ)
  Receive Date: 20240913
  Receipt Date: 20240919
  Transmission Date: 20241017
  Serious: Yes (Other)
  Sender: AMGEN
  Company Number: CZ-AMGEN-CZESP2024180279

PATIENT
  Age: 71 Year
  Sex: Female

DRUGS (1)
  1. LUMAKRAS [Suspect]
     Active Substance: SOTORASIB
     Indication: Lung adenocarcinoma
     Dosage: UNK, LUMAKRAS 120 MG TABLET
     Route: 065
     Dates: start: 202310

REACTIONS (2)
  - Ileal ulcer [Unknown]
  - Diverticulum intestinal [Unknown]
